FAERS Safety Report 10627613 (Version 2)
Quarter: 2015Q1

REPORT INFORMATION
  Report Type: Spontaneous
  Country: US (occurrence: US)
  Receive Date: 20141205
  Receipt Date: 20150113
  Transmission Date: 20150720
  Serious: Yes (Hospitalization)
  Sender: FDA-Public Use
  Company Number: US-AMGEN-USASP2014093501

PATIENT
  Age: 81 Year
  Sex: Female
  Weight: 77.1 kg

DRUGS (1)
  1. PROLIA [Suspect]
     Active Substance: DENOSUMAB
     Indication: OSTEOPOROSIS POSTMENOPAUSAL
     Dosage: 60 MG, Q6MO
     Route: 030
     Dates: start: 20131230, end: 20140701

REACTIONS (4)
  - Incorrect route of drug administration [Unknown]
  - Pneumonia [Recovered/Resolved]
  - Dyspnoea [Recovering/Resolving]
  - Malaise [Recovering/Resolving]

NARRATIVE: CASE EVENT DATE: 20140701
